FAERS Safety Report 8913440 (Version 5)
Quarter: 2023Q1

REPORT INFORMATION
  Report Type: Spontaneous
  Country: US (occurrence: None)
  Receive Date: 20121116
  Receipt Date: 20230210
  Transmission Date: 20230417
  Serious: Yes (Hospitalization, Other)
  Sender: FDA-Public Use
  Company Number: US-ROCHE-1155759

PATIENT
  Sex: Female

DRUGS (4)
  1. BONIVA [Suspect]
     Active Substance: IBANDRONATE SODIUM
     Indication: Osteoporosis
     Route: 048
     Dates: start: 200601, end: 201102
  2. BONIVA [Suspect]
     Active Substance: IBANDRONATE SODIUM
     Route: 048
     Dates: start: 20060103, end: 20101129
  3. FOSAMAX [Suspect]
     Active Substance: ALENDRONATE SODIUM
     Indication: Osteoporosis
     Route: 048
     Dates: start: 2003, end: 200512
  4. FOSAMAX [Suspect]
     Active Substance: ALENDRONATE SODIUM
     Route: 048
     Dates: start: 20050506, end: 20051223

REACTIONS (43)
  - Femur fracture [Unknown]
  - Low turnover osteopathy [Unknown]
  - Anxiety [Unknown]
  - Emotional distress [Unknown]
  - Osteoarthritis [Unknown]
  - Intervertebral disc degeneration [Unknown]
  - Anaemia [Unknown]
  - Nephrolithiasis [Unknown]
  - Gastrointestinal disorder [Unknown]
  - Renal failure [Unknown]
  - Anaemia [Unknown]
  - Blood sodium decreased [Unknown]
  - Blood potassium decreased [Unknown]
  - Blood chloride decreased [Unknown]
  - Mean platelet volume decreased [Unknown]
  - Bursitis [Unknown]
  - Myofascial pain syndrome [Unknown]
  - Leukocytosis [Unknown]
  - Anxiety [Unknown]
  - Abdominal pain [Unknown]
  - Constipation [Unknown]
  - Dyspepsia [Unknown]
  - Dysuria [Unknown]
  - Depression [Unknown]
  - Hepatic steatosis [Unknown]
  - Blood glucose increased [Unknown]
  - Dry eye [Unknown]
  - Acute kidney injury [Unknown]
  - Hyperlipidaemia [Unknown]
  - Headache [Unknown]
  - Acute sinusitis [Unknown]
  - Mycobacterium avium complex infection [Unknown]
  - Pneumonia [Unknown]
  - Neoplasm [Unknown]
  - Bronchitis [Unknown]
  - Cough [Unknown]
  - Antinuclear antibody positive [Unknown]
  - Pulmonary mass [Unknown]
  - Dizziness [Unknown]
  - Fatigue [Unknown]
  - Achromobacter infection [Unknown]
  - Pulmonary mass [Unknown]
  - Cystitis [Unknown]

NARRATIVE: CASE EVENT DATE: 20060101
